FAERS Safety Report 12993081 (Version 1)
Quarter: 2016Q4

REPORT INFORMATION
  Report Type: Report from Study
  Country: US (occurrence: US)
  Receive Date: 20161202
  Receipt Date: 20161202
  Transmission Date: 20170207
  Serious: Yes (Other)
  Sender: FDA-Public Use
  Company Number: US-ROCHE-1861626

PATIENT
  Sex: Male

DRUGS (1)
  1. NUTROPIN AQ [Suspect]
     Active Substance: SOMATROPIN
     Indication: GROWTH HORMONE DEFICIENCY
     Dosage: FORM STRENGTH: 5 MG/ML
     Route: 058

REACTIONS (4)
  - Wrong technique in product usage process [Unknown]
  - Injection site pain [Unknown]
  - Product quality issue [Unknown]
  - Underdose [Unknown]
